FAERS Safety Report 5603743-7 (Version None)
Quarter: 2008Q1

REPORT INFORMATION
  Report Type: 
  Country: None (occurrence: None)
  Receive Date: 20080128
  Receipt Date: 20070925
  Transmission Date: 20080703
  Serious: No
  Sender: FDA-Public Use
  Company Number: US-BAYER-US-2007-036193

PATIENT
  Age: 50 Year
  Sex: Female
  Weight: 56 kg

DRUGS (5)
  1. ANGELIQ [Suspect]
     Route: 048
     Dates: start: 20070813, end: 20070925
  2. SYNTHROID [Concomitant]
     Route: 048
  3. ADVAIR DISKUS 100/50 [Concomitant]
  4. ASTELIN [Concomitant]
  5. ZOLOFT [Concomitant]
     Indication: MENOPAUSAL SYMPTOMS PROPHYLAXIS

REACTIONS (1)
  - METRORRHAGIA [None]
